FAERS Safety Report 6582030-7 (Version None)
Quarter: 2010Q1

REPORT INFORMATION
  Report Type: 
  Country: None (occurrence: None)
  Receive Date: 20100215
  Receipt Date: 20100209
  Transmission Date: 20100710
  Serious: Yes (Hospitalization, Disabling)
  Sender: FDA-Public Use
  Company Number: FR-JNJFOC-20100204555

PATIENT
  Age: 72 Year
  Sex: Male

DRUGS (2)
  1. TAVANIC [Suspect]
     Indication: BRONCHITIS
     Route: 048
  2. SINTROM [Concomitant]
     Route: 065

REACTIONS (1)
  - DEAFNESS UNILATERAL [None]
